FAERS Safety Report 19403837 (Version 1)
Quarter: 2021Q2

REPORT INFORMATION
  Report Type: Spontaneous
  Country: US (occurrence: US)
  Receive Date: 20210610
  Receipt Date: 20210610
  Transmission Date: 20210717
  Serious: Yes (Other)
  Sender: FDA-Public Use
  Company Number: None

PATIENT
  Sex: Male

DRUGS (4)
  1. PRENISONE [Suspect]
     Active Substance: PREDNISONE
  2. ABIRATERONE 250MG TABLET [Suspect]
     Active Substance: ABIRATERONE
     Indication: PROSTATE CANCER
     Route: 048
     Dates: start: 20210326, end: 20210423
  3. LUPRON DEPOT [Suspect]
     Active Substance: LEUPROLIDE ACETATE
  4. ABIRATERONE 250MG TABLET [Suspect]
     Active Substance: ABIRATERONE
     Indication: PROSTATE CANCER
     Route: 048
     Dates: start: 20210424, end: 20210531

REACTIONS (1)
  - Disease progression [None]

NARRATIVE: CASE EVENT DATE: 20210601
